FAERS Safety Report 8372177-7 (Version None)
Quarter: 2012Q2

REPORT INFORMATION
  Report Type: 
  Country: None (occurrence: None)
  Receive Date: 20120521
  Receipt Date: 20120511
  Transmission Date: 20120825
  Serious: Yes (Hospitalization)
  Sender: FDA-Public Use
  Company Number: US-BIOGENIDEC-2012BI017268

PATIENT
  Sex: Female

DRUGS (3)
  1. TYSABRI [Suspect]
     Indication: MULTIPLE SCLEROSIS
     Route: 042
     Dates: start: 20080513, end: 20110101
  2. AMPYRA [Concomitant]
     Indication: GAIT DISTURBANCE
     Dates: start: 20110101
  3. TYSABRI [Suspect]
     Route: 042
     Dates: start: 20110401

REACTIONS (5)
  - OEDEMA PERIPHERAL [None]
  - LYMPHOEDEMA [None]
  - ANKLE OPERATION [None]
  - GAIT DISTURBANCE [None]
  - SWELLING FACE [None]
